FAERS Safety Report 6420954-1 (Version None)
Quarter: 2009Q4

REPORT INFORMATION
  Report Type: 
  Country: None (occurrence: None)
  Receive Date: 20091030
  Receipt Date: 20091019
  Transmission Date: 20100525
  Serious: Yes (Other)
  Sender: FDA-Public Use
  Company Number: DE-JNJFOC-20091006222

PATIENT
  Sex: Female

DRUGS (1)
  1. REMICADE [Suspect]
     Indication: CROHN'S DISEASE
     Route: 042
     Dates: start: 20050101

REACTIONS (6)
  - C-REACTIVE PROTEIN INCREASED [None]
  - CARDIOMYOPATHY [None]
  - DECREASED APPETITE [None]
  - IRON DEFICIENCY ANAEMIA [None]
  - PLATELET COUNT DECREASED [None]
  - PROTHROMBIN TIME SHORTENED [None]
